FAERS Safety Report 5200243-3 (Version None)
Quarter: 2007Q1

REPORT INFORMATION
  Report Type: 
  Country: None (occurrence: None)
  Receive Date: 20070105
  Receipt Date: 20061221
  Transmission Date: 20070707
  Serious: Yes (Other)
  Sender: FDA-Public Use
  Company Number: BE-PFIZER INC-2007001305

PATIENT
  Sex: Female

DRUGS (1)
  1. CAMPTOSAR [Suspect]

REACTIONS (1)
  - SPEECH DISORDER [None]
